FAERS Safety Report 9203528 (Version 1)
Quarter: 2013Q1

REPORT INFORMATION
  Report Type: Spontaneous
  Country: US (occurrence: None)
  Receive Date: 20130329
  Receipt Date: 20130329
  Transmission Date: 20140127
  Serious: No
  Sender: FDA-Public Use
  Company Number: None

PATIENT
  Sex: Male

DRUGS (1)
  1. RIBAPAK [Suspect]
     Indication: HEPATITIS C
     Dosage: 600 MG 2 TIMES A DAY BY MOUTH
     Route: 048
     Dates: start: 20130305

REACTIONS (7)
  - Headache [None]
  - Nausea [None]
  - Pain [None]
  - Arthralgia [None]
  - Gastrooesophageal reflux disease [None]
  - Pyrexia [None]
  - Chills [None]
